FAERS Safety Report 8306031-3 (Version None)
Quarter: 2012Q2

REPORT INFORMATION
  Report Type: 
  Country: None (occurrence: None)
  Receive Date: 20120423
  Receipt Date: 20120405
  Transmission Date: 20120825
  Serious: Yes (Other)
  Sender: FDA-Public Use
  Company Number: CHPA2012US008993

PATIENT
  Age: 42 Year
  Sex: Male

DRUGS (1)
  1. NICOTINE [Suspect]
     Indication: SMOKING CESSATION THERAPY
     Dosage: 1 DF, ONCE/SINGLE
     Route: 062

REACTIONS (15)
  - HYPOACUSIS [None]
  - NASAL DISORDER [None]
  - MUSCULOSKELETAL DISORDER [None]
  - FACIAL PAIN [None]
  - SNEEZING [None]
  - BRONCHITIS [None]
  - MIDDLE EAR EFFUSION [None]
  - CHRONIC OBSTRUCTIVE PULMONARY DISEASE [None]
  - DYSPNOEA [None]
  - HYPERSENSITIVITY [None]
  - INCORRECT DOSE ADMINISTERED [None]
  - TYMPANIC MEMBRANE PERFORATION [None]
  - INCREASED UPPER AIRWAY SECRETION [None]
  - SCAB [None]
  - INJURY [None]
